FAERS Safety Report 19514881 (Version 2)
Quarter: 2021Q3

REPORT INFORMATION
  Report Type: Spontaneous
  Country: FI (occurrence: FI)
  Receive Date: 20210710
  Receipt Date: 20210716
  Transmission Date: 20211014
  Serious: Yes (Life-Threatening, Hospitalization, Disabling, Other)
  Sender: FDA-Public Use
  Company Number: FI-MACLEODS PHARMACEUTICALS US LTD-MAC2021031811

PATIENT

DRUGS (4)
  1. INSULIN [Concomitant]
     Active Substance: INSULIN NOS
     Dosage: UNK UNK, QD, 4?12 UNITS SHORT ACTING
     Route: 042
  2. PIOGLITAZONE. [Suspect]
     Active Substance: PIOGLITAZONE
     Indication: TYPE 2 DIABETES MELLITUS
     Dosage: UNK
     Route: 065
  3. METFORMIN [Concomitant]
     Active Substance: METFORMIN HYDROCHLORIDE
     Indication: TYPE 2 DIABETES MELLITUS
     Dosage: UNK
     Route: 065
  4. INSULIN [Concomitant]
     Active Substance: INSULIN NOS
     Indication: TYPE 2 DIABETES MELLITUS
     Dosage: UNK, LONG?ACTING
     Route: 065

REACTIONS (8)
  - Condition aggravated [Recovering/Resolving]
  - Phosphaturic mesenchymal tumour [Recovering/Resolving]
  - Hyperglycaemia [Unknown]
  - Weight decreased [Unknown]
  - Pathological fracture [Recovering/Resolving]
  - Gait inability [Recovered/Resolved]
  - Hypophosphataemic osteomalacia [Recovering/Resolving]
  - Respiratory alkalosis [Recovering/Resolving]
